FAERS Safety Report 8120281-0 (Version None)
Quarter: 2012Q1

REPORT INFORMATION
  Report Type: 
  Country: None (occurrence: None)
  Receive Date: 20120207
  Receipt Date: 20120130
  Transmission Date: 20120608
  Serious: Yes (Hospitalization)
  Sender: FDA-Public Use
  Company Number: US-BAYER-2012-009667

PATIENT
  Sex: Female

DRUGS (1)
  1. YASMIN [Suspect]

REACTIONS (5)
  - PULMONARY EMBOLISM [None]
  - INJURY [None]
  - PAIN [None]
  - ANHEDONIA [None]
  - ANXIETY [None]
